FAERS Safety Report 4446831-3 (Version None)
Quarter: 2004Q3

REPORT INFORMATION
  Report Type: 
  Country: None (occurrence: None)
  Receive Date: 20040908
  Receipt Date: 20040818
  Transmission Date: 20050211
  Serious: Yes (Death)
  Sender: FDA-Public Use
  Company Number: 2004230861US

PATIENT
  Sex: Female

DRUGS (5)
  1. PROVERA [Suspect]
     Indication: HORMONE REPLACEMENT THERAPY
  2. PREMPRO [Suspect]
     Indication: HORMONE REPLACEMENT THERAPY
  3. VAGIFEM [Suspect]
     Indication: HORMONE REPLACEMENT THERAPY
  4. CLIMARA [Suspect]
     Indication: HORMONE REPLACEMENT THERAPY
  5. FEMHRT [Suspect]
     Indication: HORMONE REPLACEMENT THERAPY

REACTIONS (1)
  - OVARIAN CANCER [None]
